FAERS Safety Report 8603830-5 (Version None)
Quarter: 2012Q3

REPORT INFORMATION
  Report Type: 
  Country: None (occurrence: None)
  Receive Date: 20120818
  Receipt Date: 20111024
  Transmission Date: 20120928
  Serious: No
  Sender: FDA-Public Use
  Company Number: PHEH2011US013196

PATIENT
  Age: 81 Year
  Sex: Male

DRUGS (10)
  1. TASIGNA [Suspect]
     Dosage: 150 MG, BID
  2. PRAVASTATIN [Concomitant]
  3. DOXAZOSIN MESYLATE [Concomitant]
  4. ENALAPRIL [Concomitant]
  5. VERAPAMIL [Concomitant]
     Dosage: 240 MG, UNK
  6. CENTRUM [Concomitant]
  7. FISH OIL [Concomitant]
  8. ASCORBIC ACID [Concomitant]
  9. ASPIRIN [Concomitant]
  10. GALANTAMINE HYDROBROMIDE [Concomitant]
     Dosage: 8 MG, UNK

REACTIONS (1)
  - ABDOMINAL DISCOMFORT [None]
